FAERS Safety Report 7335856-6 (Version None)
Quarter: 2011Q1

REPORT INFORMATION
  Report Type: 
  Country: None (occurrence: None)
  Receive Date: 20110307
  Receipt Date: 20110221
  Transmission Date: 20110831
  Serious: Yes (Other)
  Sender: FDA-Public Use
  Company Number: GB-JNJFOC-20110207655

PATIENT

DRUGS (2)
  1. DARUNAVIR [Suspect]
     Indication: HIV INFECTION
     Route: 065
  2. ETRAVIRINE [Suspect]
     Indication: HIV INFECTION
     Route: 065

REACTIONS (1)
  - ASTHMA [None]
